FAERS Safety Report 4440216-1 (Version None)
Quarter: 2004Q3

REPORT INFORMATION
  Report Type: 
  Country: None (occurrence: None)
  Receive Date: 20040831
  Receipt Date: 20040609
  Transmission Date: 20050211
  Serious: No
  Sender: FDA-Public Use
  Company Number: 702057

PATIENT
  Age: 55 Year
  Sex: Male

DRUGS (4)
  1. AMEVIVE [Suspect]
     Indication: PSORIASIS
     Dosage: 15 MG QW IM
     Route: 030
  2. DOVONEX [Concomitant]
  3. AQUAPHOR [Concomitant]
  4. UVB [Concomitant]

REACTIONS (1)
  - BLOOD PRESSURE INCREASED [None]
